FAERS Safety Report 8739455 (Version 6)
Quarter: 2013Q4

REPORT INFORMATION
  Report Type: Report from Study
  Country: US (occurrence: US)
  Receive Date: 20120823
  Receipt Date: 20131022
  Transmission Date: 20140711
  Serious: Yes (Hospitalization, Other)
  Sender: FDA-Public Use
  Company Number: US-ELI_LILLY_AND_COMPANY-US201207008138

PATIENT
  Age: 75 Year
  Sex: Female

DRUGS (12)
  1. TERIPARATIDE [Suspect]
     Indication: OSTEOPOROSIS
     Dosage: 20 UG, QD
     Route: 058
     Dates: start: 20120606
  2. TERIPARATIDE [Suspect]
     Dosage: 20 UG, QD
  3. LEVOTHYROXINE [Concomitant]
     Indication: PRODUCT USED FOR UNKNOWN INDICATION
     Dosage: 112 MG ON M W F
     Route: 065
  4. LEVOTHYROXINE [Concomitant]
     Dosage: 100 MG, T, TH, SAT, SUN
  5. POTASSIUM [Concomitant]
     Indication: PRODUCT USED FOR UNKNOWN INDICATION
     Dosage: UNK, QOD
     Route: 065
  6. TRAZODONE [Concomitant]
     Indication: RESTLESS LEGS SYNDROME
     Dosage: UNK, QHS
     Route: 065
  7. LOMOTIL [Concomitant]
     Indication: SURGERY
     Dosage: UNK, QID
     Route: 065
  8. GLUCOSAMINE CHONDROITIN [Concomitant]
     Indication: PRODUCT USED FOR UNKNOWN INDICATION
     Route: 065
  9. ASPIRIN [Concomitant]
     Indication: PRODUCT USED FOR UNKNOWN INDICATION
     Route: 065
  10. CALCIUM PLUS D3 [Concomitant]
     Indication: PRODUCT USED FOR UNKNOWN INDICATION
     Route: 065
  11. ICAPS [Concomitant]
     Indication: PRODUCT USED FOR UNKNOWN INDICATION
     Route: 065
  12. POTASSIUM CHLORIDE [Concomitant]
     Indication: PRODUCT USED FOR UNKNOWN INDICATION
     Route: 065

REACTIONS (20)
  - Aortic disorder [Unknown]
  - Cardiac valve disease [Unknown]
  - Gastrooesophageal reflux disease [Unknown]
  - Hypothyroidism [Unknown]
  - Gastroenteritis [Unknown]
  - Gastritis [Unknown]
  - Abdominal pain [Recovering/Resolving]
  - Nephrolithiasis [Recovered/Resolved]
  - Back pain [Recovered/Resolved]
  - Renal pain [Recovered/Resolved]
  - Pain [Recovered/Resolved]
  - Pulmonary hypertension [Unknown]
  - Inflammation [Unknown]
  - Stress [Unknown]
  - Deafness [Unknown]
  - Blood potassium decreased [Unknown]
  - Musculoskeletal discomfort [Unknown]
  - Hypertension [Unknown]
  - Sleep disorder [Unknown]
  - Nervousness [Unknown]
